FAERS Safety Report 10365993 (Version 1)
Quarter: 2014Q3

REPORT INFORMATION
  Report Type: Spontaneous
  Country: US (occurrence: None)
  Receive Date: 20140804
  Receipt Date: 20140804
  Transmission Date: 20150326
  Serious: No
  Sender: FDA-Public Use
  Company Number: None

PATIENT
  Age: 38 Year
  Sex: Female
  Weight: 44.45 kg

DRUGS (2)
  1. DULOXETINE 20 MG TEVA [Suspect]
     Active Substance: DULOXETINE
     Indication: DEPRESSION
     Route: 048
     Dates: start: 20140412, end: 20140721
  2. DULOXETINE 20 MG TEVA [Suspect]
     Active Substance: DULOXETINE
     Indication: PAIN
     Route: 048
     Dates: start: 20140412, end: 20140721

REACTIONS (12)
  - Eye movement disorder [None]
  - Laceration [None]
  - Skin exfoliation [None]
  - Product quality issue [None]
  - Dizziness [None]
  - Abdominal discomfort [None]
  - Rash [None]
  - Product formulation issue [None]
  - Headache [None]
  - Vertigo [None]
  - Product substitution issue [None]
  - Impaired healing [None]

NARRATIVE: CASE EVENT DATE: 20140801
